FAERS Safety Report 4967667-0 (Version None)
Quarter: 2006Q2

REPORT INFORMATION
  Report Type: 
  Country: None (occurrence: None)
  Receive Date: 20060410
  Receipt Date: 20050831
  Transmission Date: 20061013
  Serious: Yes (Other)
  Sender: FDA-Public Use
  Company Number: US-MERCK-0509USA00181

PATIENT
  Age: 49 Year
  Sex: Female
  Weight: 111 kg

DRUGS (8)
  1. VIOXX [Suspect]
     Indication: PAIN
     Route: 048
     Dates: start: 20010501
  2. ASPIRIN [Concomitant]
     Route: 065
  3. WELLBUTRIN [Concomitant]
     Route: 065
  4. ALLEGRA [Concomitant]
     Route: 065
  5. RANITIDINE [Concomitant]
     Route: 048
  6. BACTROBAN [Concomitant]
     Route: 065
  7. LOTREL [Concomitant]
     Route: 065
  8. DETROL [Concomitant]
     Route: 065

REACTIONS (8)
  - ANXIETY [None]
  - ATELECTASIS [None]
  - CEREBROVASCULAR ACCIDENT [None]
  - CHRONIC OBSTRUCTIVE PULMONARY DISEASE [None]
  - FEAR [None]
  - OSTEOARTHRITIS [None]
  - PAIN [None]
  - UTERINE CANCER [None]
